FAERS Safety Report 7867343-0 (Version None)
Quarter: 2011Q4

REPORT INFORMATION
  Report Type: 
  Country: None (occurrence: None)
  Receive Date: 20111028
  Receipt Date: 20111018
  Transmission Date: 20120403
  Serious: Yes (Death, Hospitalization, Other)
  Sender: FDA-Public Use
  Company Number: IT-BRISTOL-MYERS SQUIBB COMPANY-16091928

PATIENT
  Age: 85 Year
  Sex: Male

DRUGS (4)
  1. COUMADIN [Suspect]
     Indication: ATRIAL FIBRILLATION
     Dosage: 1 DF = 1 UNIT
     Route: 048
     Dates: start: 20020101, end: 20110515
  2. SPRYCEL [Suspect]
  3. METFORMIN HCL [Suspect]
  4. LASIX [Suspect]

REACTIONS (8)
  - ROAD TRAFFIC ACCIDENT [None]
  - HAEMATURIA [None]
  - DEATH [None]
  - CEREBRAL HAEMORRHAGE [None]
  - MALAISE [None]
  - ESCHERICHIA INFECTION [None]
  - HYPERTENSION [None]
  - HYPERNATRAEMIA [None]
